FAERS Safety Report 7215116-4 (Version None)
Quarter: 2011Q1

REPORT INFORMATION
  Report Type: 
  Country: None (occurrence: None)
  Receive Date: 20110107
  Receipt Date: 20100822
  Transmission Date: 20110831
  Serious: No
  Sender: FDA-Public Use
  Company Number: A0877988A

PATIENT
  Sex: Male

DRUGS (2)
  1. LOVAZA [Suspect]
     Dates: start: 20100101
  2. UNSPECIFIED MEDICATION [Concomitant]

REACTIONS (2)
  - DYSGEUSIA [None]
  - FOOD INTOLERANCE [None]
